FAERS Safety Report 17098972 (Version 1)
Quarter: 2019Q4

REPORT INFORMATION
  Report Type: Spontaneous
  Country: US (occurrence: US)
  Receive Date: 20191202
  Receipt Date: 20191202
  Transmission Date: 20200122
  Serious: Yes (Hospitalization, Other)
  Sender: FDA-Public Use
  Company Number: US-BAYER-2019-215835

PATIENT
  Age: 73 Year
  Sex: Female

DRUGS (5)
  1. MIRALAX [Suspect]
     Active Substance: POLYETHYLENE GLYCOL 3350
     Indication: GASTROINTESTINAL DISORDER
     Dosage: 1 DF, QD
     Route: 048
     Dates: end: 20191116
  2. IMIPRAMINE [Concomitant]
     Active Substance: IMIPRAMINE
  3. SALBUTAMOL [Concomitant]
     Active Substance: ALBUTEROL
  4. DICYCLOMINE [DICYCLOVERINE] [Concomitant]
  5. SALBUTAMOL [Concomitant]
     Active Substance: ALBUTEROL

REACTIONS (7)
  - Muscle spasms [Recovered/Resolved]
  - Angina pectoris [Recovered/Resolved]
  - Nausea [Recovered/Resolved]
  - Urinary retention [None]
  - Diarrhoea [Recovered/Resolved]
  - Colonoscopy [None]
  - Constipation [None]

NARRATIVE: CASE EVENT DATE: 201910
